FAERS Safety Report 11865834 (Version 5)
Quarter: 2016Q1

REPORT INFORMATION
  Report Type: Spontaneous
  Country: US (occurrence: US)
  Receive Date: 20151223
  Receipt Date: 20160126
  Transmission Date: 20160526
  Serious: Yes (Hospitalization)
  Sender: FDA-Public Use
  Company Number: US-ACTELION-A-NJ2015-129117

PATIENT
  Age: 75 Year
  Sex: Female
  Weight: 63.95 kg

DRUGS (8)
  1. VENTAVIS [Suspect]
     Active Substance: ILOPROST
     Indication: PULMONARY ARTERIAL HYPERTENSION
     Dosage: 5 MCG, 3XDAILY
     Route: 055
     Dates: start: 20150604, end: 201512
  2. OPSUMIT [Suspect]
     Active Substance: MACITENTAN
     Indication: PULMONARY ARTERIAL HYPERTENSION
     Dosage: 10 MG, QD
     Route: 048
     Dates: start: 20150427
  3. LASIX [Concomitant]
     Active Substance: FUROSEMIDE
     Dosage: UNK
     Route: 042
     Dates: start: 20151216, end: 20151221
  4. LASIX [Concomitant]
     Active Substance: FUROSEMIDE
     Dosage: 40 MG, QD
     Route: 048
     Dates: start: 20150901, end: 20151216
  5. AMLODIPINE [Concomitant]
     Active Substance: AMLODIPINE BESYLATE
  6. LASIX [Concomitant]
     Active Substance: FUROSEMIDE
     Dosage: 60 MG, BID
     Route: 048
     Dates: start: 20151221
  7. VENTAVIS [Suspect]
     Active Substance: ILOPROST
     Dosage: UNK, 6XDAILY
     Route: 055
     Dates: start: 201512
  8. OXYGEN. [Concomitant]
     Active Substance: OXYGEN
     Dosage: 2.5 L, UNK
     Route: 055

REACTIONS (6)
  - Oedema [Recovered/Resolved]
  - Oxygen saturation decreased [Recovered/Resolved]
  - Cardiac failure congestive [Unknown]
  - Hypokalaemia [Recovered/Resolved]
  - Pulmonary hypertension [Recovered/Resolved]
  - Disease progression [Recovered/Resolved]
